FAERS Safety Report 8050437-7 (Version None)
Quarter: 2012Q1

REPORT INFORMATION
  Report Type: 
  Country: None (occurrence: None)
  Receive Date: 20120117
  Receipt Date: 20120111
  Transmission Date: 20120608
  Serious: Yes (Hospitalization, Other)
  Sender: FDA-Public Use
  Company Number: JP-JNJFOC-20090904504

PATIENT
  Sex: Male
  Weight: 55 kg

DRUGS (12)
  1. ITRACONAZOLE [Suspect]
     Dosage: 400MG-200MG PER DAY
     Route: 041
     Dates: start: 20090312, end: 20090313
  2. FERROUS CITRATE [Concomitant]
     Indication: MYELODYSPLASTIC SYNDROME
     Route: 048
     Dates: start: 20071001
  3. PROTECADIN [Concomitant]
     Indication: GASTRIC ULCER
     Route: 048
     Dates: start: 20071001
  4. ITRACONAZOLE [Suspect]
     Route: 041
     Dates: start: 20090314, end: 20090321
  5. ARASENA-A [Concomitant]
     Indication: HERPES SIMPLEX
     Route: 061
  6. PREDNISOLONE [Concomitant]
     Indication: MYELODYSPLASTIC SYNDROME
     Route: 048
     Dates: start: 20071001
  7. ITRACONAZOLE [Suspect]
     Indication: BRONCHOPULMONARY ASPERGILLOSIS
     Route: 041
  8. UNKNOWN ADRENAL HORMONE PREPARATIONS [Concomitant]
     Indication: MYELODYSPLASTIC SYNDROME
     Route: 065
  9. ITRACONAZOLE [Suspect]
     Route: 048
     Dates: start: 20090322, end: 20090413
  10. PRIMOBOLAN-DEPOT INJ [Concomitant]
     Indication: MYELODYSPLASTIC SYNDROME
     Route: 048
     Dates: start: 20071001
  11. ALFAROL [Concomitant]
     Indication: MYELODYSPLASTIC SYNDROME
     Route: 048
     Dates: start: 20071001
  12. METHYCOBAL [Concomitant]
     Indication: HERPES SIMPLEX
     Route: 048
     Dates: start: 20071001

REACTIONS (3)
  - HYPOKALAEMIA [None]
  - LOCALISED OEDEMA [None]
  - CARDIAC FAILURE [None]
